FAERS Safety Report 4509250-7 (Version None)
Quarter: 2004Q4

REPORT INFORMATION
  Report Type: 
  Country: None (occurrence: None)
  Receive Date: 20041123
  Receipt Date: 20041011
  Transmission Date: 20050328
  Serious: Yes (Life-Threatening, Hospitalization, Disabling)
  Sender: FDA-Public Use
  Company Number: US-MERCK-0410USA01477

PATIENT
  Age: 52 Year
  Sex: Female
  Weight: 85 kg

DRUGS (6)
  1. VIOXX [Suspect]
     Indication: OSTEOARTHRITIS
     Route: 048
     Dates: start: 20000209
  2. FLOVENT [Concomitant]
     Route: 065
  3. VITAMINS (UNSPECIFIED) [Concomitant]
     Route: 065
  4. PANCREASE (PANCREATIN) [Concomitant]
     Route: 048
  5. LEVSINEX TIMECAPS [Concomitant]
     Route: 065
  6. SEREVENT [Concomitant]
     Route: 065

REACTIONS (8)
  - ANGINA PECTORIS [None]
  - CHEST PAIN [None]
  - DIAPHRAGMATIC DISORDER [None]
  - DYSPNOEA [None]
  - EJECTION FRACTION ABNORMAL [None]
  - FATIGUE [None]
  - HEART ALTERNATION [None]
  - MYOCARDIAL INFARCTION [None]
